FAERS Safety Report 19815770 (Version 1)
Quarter: 2021Q3

REPORT INFORMATION
  Report Type: Spontaneous
  Country: JP (occurrence: JP)
  Receive Date: 20210909
  Receipt Date: 20210909
  Transmission Date: 20211014
  Serious: Yes (Other)
  Sender: FDA-Public Use
  Company Number: JP-FERRINGPH-2021FE05684

PATIENT
  Age: 39 Year
  Sex: Female

DRUGS (1)
  1. HMG FERRING [Suspect]
     Active Substance: MENOTROPINS
     Indication: PRODUCT USED FOR UNKNOWN INDICATION
     Dosage: INJECTION
     Route: 065
     Dates: start: 202010, end: 202010

REACTIONS (1)
  - Urticaria [Unknown]
